FAERS Safety Report 9433882 (Version 1)
Quarter: 2013Q3

REPORT INFORMATION
  Report Type: Spontaneous
  Country: GB (occurrence: GB)
  Receive Date: 20130801
  Receipt Date: 20130801
  Transmission Date: 20140515
  Serious: Yes (Disabling, Other)
  Sender: FDA-Public Use
  Company Number: GB-ABBOTT-13X-167-1125943-00

PATIENT
  Sex: 0

DRUGS (1)
  1. SODIUM VALPROATE [Suspect]
     Indication: MATERNAL EXPOSURE TIMING UNSPECIFIED
     Route: 064

REACTIONS (8)
  - Pupils unequal [Unknown]
  - Speech disorder developmental [Unknown]
  - Developmental delay [Not Recovered/Not Resolved]
  - Social avoidant behaviour [Unknown]
  - Social problem [Unknown]
  - Intelligence test abnormal [Not Recovered/Not Resolved]
  - Mental disorder [Unknown]
  - Foetal exposure during pregnancy [Unknown]
